FAERS Safety Report 6216724-X (Version None)
Quarter: 2009Q2

REPORT INFORMATION
  Report Type: 
  Country: None (occurrence: None)
  Receive Date: 20090605
  Receipt Date: 20090602
  Transmission Date: 20091009
  Serious: Yes (Other)
  Sender: FDA-Public Use
  Company Number: US-JNJFOC-20090601421

PATIENT
  Age: 10 Year
  Sex: Male
  Weight: 35.83 kg

DRUGS (3)
  1. MS PEPCID AC EZ CHEWS BERRIES AND CREAM [Suspect]
     Dosage: 120-160 MG
  2. MS PEPCID AC EZ CHEWS BERRIES AND CREAM [Suspect]
     Indication: DRUG WITHDRAWAL MAINTENANCE THERAPY
  3. ALL OTHER THERAPEUTIC PRODUCTS [Concomitant]

REACTIONS (3)
  - ACCIDENTAL DRUG INTAKE BY CHILD [None]
  - ACCIDENTAL OVERDOSE [None]
  - OVERDOSE [None]
